FAERS Safety Report 6267807-X (Version None)
Quarter: 2009Q3

REPORT INFORMATION
  Report Type: 
  Country: None (occurrence: None)
  Receive Date: 20090709
  Receipt Date: 20090709
  Transmission Date: 20100115
  Serious: Yes (Other)
  Sender: FDA-Public Use
  Company Number: None

PATIENT
  Sex: Male
  Weight: 89.1 kg

DRUGS (2)
  1. BYSTOLIC [Suspect]
     Indication: ESSENTIAL TREMOR
     Dates: start: 20090421, end: 20090604
  2. BYSTOLIC [Suspect]
     Indication: HYPERTENSION
     Dates: start: 20090421, end: 20090604

REACTIONS (2)
  - DEPRESSION [None]
  - SUICIDAL IDEATION [None]
